FAERS Safety Report 11276464 (Version 3)
Quarter: 2015Q4

REPORT INFORMATION
  Report Type: Spontaneous
  Country: US (occurrence: US)
  Receive Date: 20150716
  Receipt Date: 20151109
  Transmission Date: 20160304
  Serious: Yes (Death, Other)
  Sender: FDA-Public Use
  Company Number: US-ASTELLAS-2015US024904

PATIENT
  Age: 90 Year
  Sex: Female

DRUGS (3)
  1. TARCEVA [Suspect]
     Active Substance: ERLOTINIB HYDROCHLORIDE
     Indication: SKIN CANCER
     Route: 048
     Dates: start: 20150512, end: 20150708
  2. TARCEVA [Suspect]
     Active Substance: ERLOTINIB HYDROCHLORIDE
     Indication: NEOPLASM MALIGNANT
     Route: 048
  3. TARCEVA [Suspect]
     Active Substance: ERLOTINIB HYDROCHLORIDE
     Indication: LIP NEOPLASM MALIGNANT STAGE UNSPECIFIED
     Route: 048
     Dates: start: 20150714

REACTIONS (4)
  - Eye swelling [Recovering/Resolving]
  - Death [Fatal]
  - Rash [Recovering/Resolving]
  - Drug dose omission [Unknown]

NARRATIVE: CASE EVENT DATE: 20150707
